FAERS Safety Report 11809837 (Version 1)
Quarter: 2015Q4

REPORT INFORMATION
  Report Type: Spontaneous
  Country: US (occurrence: None)
  Receive Date: 20151207
  Receipt Date: 20151207
  Transmission Date: 20160305
  Serious: Yes (Disabling, Other)
  Sender: FDA-Public Use
  Company Number: None

PATIENT
  Age: 20 Year
  Sex: Male
  Weight: 65.77 kg

DRUGS (3)
  1. FINASTERIDE. [Suspect]
     Active Substance: FINASTERIDE
     Indication: ALOPECIA
     Dosage: TAKEN BY MOUTH
     Dates: start: 20151201, end: 20151202
  2. IBUPROFEN. [Concomitant]
     Active Substance: IBUPROFEN
  3. FINASTERIDE. [Concomitant]
     Active Substance: FINASTERIDE

REACTIONS (5)
  - Depressed level of consciousness [None]
  - Memory impairment [None]
  - Tremor [None]
  - Feeling abnormal [None]
  - Erectile dysfunction [None]

NARRATIVE: CASE EVENT DATE: 20151201
